FAERS Safety Report 6543643 (Version 7)
Quarter: 2020Q3

REPORT INFORMATION
  Report Type: Spontaneous
  Country: GB (occurrence: GB)
  Receive Date: 20080205
  Receipt Date: 20091001
  Transmission Date: 20201104
  Serious: Yes (Other)
  Sender: FDA-Public Use
  Company Number: GB-ROCHE-542963

PATIENT
  Age: 51 Year
  Sex: Female

DRUGS (12)
  1. ZOLEDRONIC ACID [Interacting]
     Active Substance: ZOLEDRONIC ACID
     Route: 042
     Dates: start: 200212
  2. TAMOXIFEN CITRATE. [Interacting]
     Active Substance: TAMOXIFEN CITRATE
     Indication: BREAST CANCER
     Route: 048
  3. AROMASIN [Interacting]
     Active Substance: EXEMESTANE
     Indication: BREAST CANCER
     Route: 065
  4. ZOLEDRONATE [Interacting]
     Active Substance: ZOLEDRONIC ACID
     Dosage: REPORTED AS ZOLEDRONATE ION.
     Route: 042
     Dates: start: 20021215
  5. METHOTREXATE. [Interacting]
     Active Substance: METHOTREXATE
     Indication: BREAST CANCER
     Route: 065
  6. PAMIDRONATE DISODIUM. [Suspect]
     Active Substance: PAMIDRONATE DISODIUM
     Dosage: ROUTE: INTRAVENOUS BOLUS
     Route: 042
     Dates: start: 200201, end: 200211
  7. IBANDRONIC ACID. [Interacting]
     Active Substance: IBANDRONIC ACID
     Indication: BREAST CANCER METASTATIC
     Route: 048
     Dates: start: 200408
  8. ARIMIDEX [Interacting]
     Active Substance: ANASTROZOLE
     Indication: BREAST CANCER
     Route: 048
  9. CLODRONIC ACID [Interacting]
     Active Substance: CLODRONIC ACID
     Indication: BREAST CANCER METASTATIC
     Dosage: DRUG WITHDRAWN.
     Route: 048
     Dates: start: 200104, end: 200201
  10. CYCLOPHOSPHAMIDE. [Interacting]
     Active Substance: CYCLOPHOSPHAMIDE
     Indication: BREAST CANCER
     Route: 065
  11. FLUOROURACIL. [Interacting]
     Active Substance: FLUOROURACIL
     Indication: BREAST CANCER
     Route: 065
  12. ZOLEDRONIC ACID [Interacting]
     Active Substance: ZOLEDRONIC ACID
     Indication: BREAST CANCER METASTATIC
     Route: 042
     Dates: start: 200201

REACTIONS (18)
  - Swelling face [Recovered/Resolved]
  - Drug interaction [Not Recovered/Not Resolved]
  - Breath odour [Recovered/Resolved]
  - Dental caries [Recovered/Resolved]
  - Tooth disorder [Recovered/Resolved]
  - Actinomycosis [Recovered/Resolved]
  - Teeth brittle [Recovered/Resolved]
  - Bone disorder [Recovered/Resolved]
  - Jaw disorder [Recovered/Resolved]
  - Bone sequestrum [Recovered/Resolved]
  - Sequestrectomy [Recovered/Resolved]
  - Facial pain [Recovered/Resolved]
  - Mucosal inflammation [Recovered/Resolved]
  - Nasal disorder [Recovered/Resolved]
  - Mouth ulceration [Recovered/Resolved]
  - Infection [Unknown]
  - Osteonecrosis [Unknown]
  - Weight decreased [Recovered/Resolved]
